FAERS Safety Report 13210182 (Version 1)
Quarter: 2017Q1

REPORT INFORMATION
  Report Type: Report from Study
  Country: None (occurrence: US)
  Receive Date: 20170210
  Receipt Date: 20170210
  Transmission Date: 20170428
  Serious: Yes (Other)
  Sender: FDA-Public Use
  Company Number: US-ABBVIE-16K-163-1772342-00

PATIENT
  Sex: Male

DRUGS (2)
  1. HUMIRA [Suspect]
     Active Substance: ADALIMUMAB
     Indication: RHEUMATOID ARTHRITIS
  2. HUMIRA [Suspect]
     Active Substance: ADALIMUMAB
     Indication: ANKYLOSING SPONDYLITIS
     Route: 058

REACTIONS (17)
  - Tremor [Unknown]
  - Fatigue [Unknown]
  - Arthropathy [Unknown]
  - Pain [Unknown]
  - Gait disturbance [Unknown]
  - Immunodeficiency [Unknown]
  - Arthralgia [Unknown]
  - Neuralgia [Unknown]
  - Fall [Unknown]
  - Respiratory tract congestion [Unknown]
  - Seizure [Unknown]
  - Dysstasia [Unknown]
  - Muscle disorder [Unknown]
  - Osteoarthritis [Unknown]
  - Bronchitis chronic [Unknown]
  - Headache [Unknown]
  - Sarcoidosis [Unknown]
